FAERS Safety Report 26053941 (Version 1)
Quarter: 2025Q4

REPORT INFORMATION
  Report Type: Other
  Country: GB (occurrence: GB)
  Receive Date: 20251117
  Receipt Date: 20251117
  Transmission Date: 20260117
  Serious: Yes (Other)
  Sender: GLENMARK
  Company Number: GB-MHRA-TPP63897874C5299078YC1762269041005

PATIENT
  Age: 93 Year
  Sex: Female

DRUGS (6)
  1. SOLIFENACIN SUCCINATE [Suspect]
     Active Substance: SOLIFENACIN SUCCINATE
     Indication: Ill-defined disorder
     Dosage: UNK
     Route: 065
     Dates: start: 20251104
  2. Adcal [Concomitant]
     Indication: Ill-defined disorder
     Dosage: UNK UNK, BID (TAKE ONE TWICE DAILY)
     Route: 065
     Dates: start: 20251007
  3. APIXABAN [Concomitant]
     Active Substance: APIXABAN
     Indication: Ill-defined disorder
     Dosage: UNK UNK, BID (TAKE ONE TWICE DAILY)
     Route: 065
     Dates: start: 20251007
  4. POLYETHYLENE GLYCOL 3350\POTASSIUM CHLORIDE\SODIUM BICARBONATE\SODIUM [Concomitant]
     Active Substance: POLYETHYLENE GLYCOL 3350\POTASSIUM CHLORIDE\SODIUM BICARBONATE\SODIUM CHLORIDE
     Indication: Constipation
     Dosage: UNK (ONE SACHET TWICE DAILY AS REQUIRED FOR CONSTIPATION)
     Route: 065
     Dates: start: 20251007
  5. ACETAMINOPHEN [Concomitant]
     Active Substance: ACETAMINOPHEN
     Indication: Ill-defined disorder
     Dosage: 2 DOSAGE FORM, PRN (TAKE 2 TABLETS UP TO FOUR TIMES DAILY, AS REQUI.)
     Route: 065
     Dates: start: 20251007
  6. SENNA [Concomitant]
     Active Substance: SENNOSIDES
     Indication: Constipation
     Dosage: TAKE 2 AT NIGHT, AS REQUIRED FOR CONSTIPATION
     Route: 065
     Dates: start: 20251007

REACTIONS (1)
  - Ocular hyperaemia [Recovered/Resolved]

NARRATIVE: CASE EVENT DATE: 20251104
